FAERS Safety Report 16034644 (Version 1)
Quarter: 2019Q1

REPORT INFORMATION
  Report Type: Spontaneous
  Country: US (occurrence: US)
  Receive Date: 20190205
  Receipt Date: 20190205
  Transmission Date: 20190418
  Serious: No
  Sender: FDA-Public Use
  Company Number: None

PATIENT
  Age: 36 Year
  Sex: Female

DRUGS (1)
  1. TENOFOVIR TAB  300MG [Suspect]
     Active Substance: TENOFOVIR
     Indication: CHRONIC HEPATITIS B
     Route: 048
     Dates: start: 201901

REACTIONS (2)
  - Rash [None]
  - Diarrhoea [None]

NARRATIVE: CASE EVENT DATE: 20190205
